FAERS Safety Report 8273261 (Version 2)
Quarter: 2012Q4

REPORT INFORMATION
  Report Type: 
  Country: US (occurrence: US)
  Receive Date: 20111202
  Receipt Date: 20120928
  Transmission Date: 20130627
  Serious: Yes (Hospitalization)
  Sender: FDA-Public Use
  Company Number: US-US-EMD SERONO, INC.-7098589

PATIENT
  Age: 19 None
  Sex: Female
  Weight: 61 kg

DRUGS (5)
  1. REBIF [Suspect]
     Indication: MULTIPLE SCLEROSIS
     Dates: start: 201111
  2. REBIF [Suspect]
  3. REBIF [Suspect]
  4. REBIF [Suspect]
     Dates: start: 201112
  5. LEXAPRO [Concomitant]
     Indication: DEPRESSION

REACTIONS (1)
  - Multiple sclerosis relapse [Recovered/Resolved]
